FAERS Safety Report 4971534-6 (Version None)
Quarter: 2006Q2

REPORT INFORMATION
  Report Type: 
  Country: None (occurrence: None)
  Receive Date: 20060407
  Receipt Date: 20060330
  Transmission Date: 20061013
  Serious: Yes (Death)
  Sender: FDA-Public Use
  Company Number: 06H-163-0306979-00

PATIENT
  Age: 71 Year
  Sex: Male

DRUGS (22)
  1. ETOPOSIDE [Suspect]
     Indication: SMALL CELL LUNG CANCER STAGE UNSPECIFIED
     Dosage: 60 MG/M*2,
     Dates: start: 20051021, end: 20060126
  2. IRINOTECAN HCL [Suspect]
     Indication: SMALL CELL LUNG CANCER STAGE UNSPECIFIED
     Dosage: 100 MG/M*2,; INTRAVENOUS, 90 MG/M*2, INTRAVENOUS
     Route: 042
     Dates: start: 20051021, end: 20060126
  3. IRINOTECAN HCL [Suspect]
     Indication: SMALL CELL LUNG CANCER STAGE UNSPECIFIED
     Dosage: 100 MG/M*2,; INTRAVENOUS, 90 MG/M*2, INTRAVENOUS
     Route: 042
     Dates: start: 20051021, end: 20060126
  4. CISPLATIN [Suspect]
     Indication: SMALL CELL LUNG CANCER STAGE UNSPECIFIED
     Dosage: 20 MG/M*2,
     Dates: start: 20051021, end: 20060126
  5. MULTIVITAMIN [Concomitant]
  6. ASCORBIC ACID [Concomitant]
  7. CYANOCOBALAMIN [Concomitant]
  8. PRIMATENE (EPINEPHRINE) [Concomitant]
  9. ALEVE [Concomitant]
  10. EXCEDRIN (PARA-SELTZER) [Concomitant]
  11. DECADRON [Concomitant]
  12. ZOFRAN [Concomitant]
  13. NEUPOGEN [Concomitant]
  14. MAGNESIUM [Concomitant]
  15. IMODIUM [Concomitant]
  16. AVAPRO [Concomitant]
  17. ALBUTEROL [Concomitant]
  18. CLONIDINE [Concomitant]
  19. NIFEDIPINE [Concomitant]
  20. MAGNESIUM SULFATE [Concomitant]
  21. PROCRIT [Concomitant]
  22. ROCEPHIN [Concomitant]

REACTIONS (3)
  - ANAEMIA [None]
  - DYSPNOEA [None]
  - FEBRILE NEUTROPENIA [None]
